FAERS Safety Report 18365833 (Version 1)
Quarter: 2020Q4

REPORT INFORMATION
  Report Type: Report from Study
  Country: MX (occurrence: MX)
  Receive Date: 20201009
  Receipt Date: 20201009
  Transmission Date: 20210114
  Serious: Yes (Death)
  Sender: FDA-Public Use
  Company Number: NVSC2020MX272919

PATIENT
  Sex: Female
  Weight: 110 kg

DRUGS (1)
  1. ENTRESTO [Suspect]
     Active Substance: SACUBITRIL\VALSARTAN
     Indication: CARDIAC DISORDER
     Dosage: UNK
     Route: 065
     Dates: start: 201907, end: 201908

REACTIONS (3)
  - Blood pressure abnormal [Fatal]
  - Product use in unapproved indication [Unknown]
  - Infarction [Fatal]
